FAERS Safety Report 9562300 (Version 1)
Quarter: 2013Q3

REPORT INFORMATION
  Report Type: Spontaneous
  Country: DE (occurrence: DE)
  Receive Date: 20130927
  Receipt Date: 20130927
  Transmission Date: 20140515
  Serious: Yes (Other)
  Sender: FDA-Public Use
  Company Number: DE-GLAXOSMITHKLINE-D0081189A

PATIENT
  Sex: Female

DRUGS (1)
  1. BENLYSTA [Suspect]
     Route: 042

REACTIONS (2)
  - Urinary tract infection [Unknown]
  - Dysuria [Unknown]
